FAERS Safety Report 5957193-4 (Version None)
Quarter: 2008Q4

REPORT INFORMATION
  Report Type: 
  Country: None (occurrence: None)
  Receive Date: 20081117
  Receipt Date: 20081117
  Transmission Date: 20090506
  Serious: Yes (Death)
  Sender: FDA-Public Use
  Company Number: None

PATIENT
  Sex: Female

DRUGS (1)
  1. MORPHINE SULFATE INJ [Suspect]
     Indication: PAIN
     Dosage: 15 MG 1 EVERY 8 HRS OR
     Route: 048
     Dates: end: 20080529

REACTIONS (1)
  - DEATH [None]
